FAERS Safety Report 7216208-6 (Version None)
Quarter: 2011Q1

REPORT INFORMATION
  Report Type: 
  Country: None (occurrence: None)
  Receive Date: 20110107
  Receipt Date: 20101227
  Transmission Date: 20110831
  Serious: Yes (Other)
  Sender: FDA-Public Use
  Company Number: US-ELI_LILLY_AND_COMPANY-US201012006492

PATIENT
  Sex: Male

DRUGS (2)
  1. IMMUNOSUPPRESSANTS [Concomitant]
  2. CIALIS [Suspect]
     Dosage: 1 D/F, UNKNOWN

REACTIONS (1)
  - RENAL TRANSPLANT [None]
